FAERS Safety Report 9861388 (Version 1)
Quarter: 2014Q1

REPORT INFORMATION
  Report Type: Spontaneous
  Country: BR (occurrence: BR)
  Receive Date: 20140203
  Receipt Date: 20140203
  Transmission Date: 20141002
  Serious: Yes (Other)
  Sender: FDA-Public Use
  Company Number: BR-JNJFOC-20140113761

PATIENT
  Sex: Male
  Weight: 95 kg

DRUGS (3)
  1. TYLENOL ANALGESIC UNKNOWN [Suspect]
     Route: 048
  2. TYLENOL ANALGESIC UNKNOWN [Suspect]
     Indication: PAIN
     Route: 048
     Dates: start: 2013
  3. ALLOPURINOL [Concomitant]
     Indication: BLOOD URIC ACID
     Route: 048

REACTIONS (1)
  - Blood bilirubin abnormal [Not Recovered/Not Resolved]
